FAERS Safety Report 12641909 (Version 1)
Quarter: 2016Q3

REPORT INFORMATION
  Report Type: Spontaneous
  Country: US (occurrence: US)
  Receive Date: 20160810
  Receipt Date: 20160810
  Transmission Date: 20161109
  Serious: No
  Sender: FDA-Public Use
  Company Number: US-TARO-2015TAR00818

PATIENT
  Age: 38 Year
  Sex: Female
  Weight: 68.27 kg

DRUGS (8)
  1. NASCENT IODINE [Concomitant]
     Dosage: UNK
  2. RHODIOLA [Concomitant]
     Active Substance: HERBALS
     Dosage: UNK
  3. LITHATE [Concomitant]
     Dosage: UNK
  4. ARGENTYN 23 [Concomitant]
     Dosage: UNK
  5. CLOBETASOL PROPIONATE CREAM USP 0.05% [Suspect]
     Active Substance: CLOBETASOL PROPIONATE
     Indication: SKIN DISORDER
     Dosage: UNK UNK, ONCE
     Route: 061
     Dates: start: 20150825, end: 20150825
  6. VITAMIN D3 [Concomitant]
     Active Substance: CHOLECALCIFEROL
     Dosage: UNK
  7. UDO OIL [Concomitant]
     Dosage: UNK
  8. SUPER K [Concomitant]
     Dosage: UNK

REACTIONS (1)
  - Urticaria [Recovered/Resolved]

NARRATIVE: CASE EVENT DATE: 20150825
